FAERS Safety Report 6589612-7 (Version None)
Quarter: 2010Q1

REPORT INFORMATION
  Report Type: 
  Country: None (occurrence: None)
  Receive Date: 20100212
  Receipt Date: 20100202
  Transmission Date: 20100710
  Serious: Yes (Other)
  Sender: FDA-Public Use
  Company Number: 2010US000018

PATIENT
  Age: 53 Year
  Sex: Male
  Weight: 105 kg

DRUGS (8)
  1. LEXISCAN [Suspect]
     Indication: SCAN MYOCARDIAL PERFUSION
     Dosage: 0.4 MG, TOTAL DOSE, IV BOLUS
     Route: 040
     Dates: start: 20090928, end: 20090928
  2. METOPROLOL (METOPROLOL) [Concomitant]
  3. AVALIDE [Concomitant]
  4. AMLODIPINE [Concomitant]
  5. PLAVIX [Concomitant]
  6. CRESTOR [Concomitant]
  7. ASPIRIN [Concomitant]
  8. MOBIC [Concomitant]

REACTIONS (6)
  - ATRIOVENTRICULAR BLOCK COMPLETE [None]
  - CHOKING [None]
  - EXTRASYSTOLES [None]
  - PRESYNCOPE [None]
  - SINUS ARREST [None]
  - UNRESPONSIVE TO STIMULI [None]
